FAERS Safety Report 25785999 (Version 1)
Quarter: 2025Q3

REPORT INFORMATION
  Report Type: Spontaneous
  Country: US (occurrence: US)
  Receive Date: 20250910
  Receipt Date: 20250910
  Transmission Date: 20251020
  Serious: Yes (Other)
  Sender: MALLINCKRODT
  Company Number: US-MALLINCKRODT-MNK202505529

PATIENT
  Age: 72 Year
  Sex: Female

DRUGS (5)
  1. NITRIC OXIDE [Suspect]
     Active Substance: NITRIC OXIDE
     Indication: Pulmonary hypertension
     Route: 055
  2. NOREPINEPHRINE [Concomitant]
     Active Substance: NOREPINEPHRINE
  3. VASOPRESSIN [Concomitant]
     Active Substance: VASOPRESSIN
  4. EPINEPHRINE [Concomitant]
     Active Substance: EPINEPHRINE
  5. MILRINONE [Concomitant]
     Active Substance: MILRINONE

REACTIONS (4)
  - Mitral valve incompetence [Recovering/Resolving]
  - Hypotension [Recovering/Resolving]
  - Systolic anterior motion of mitral valve [Recovering/Resolving]
  - Product use issue [Unknown]
